FAERS Safety Report 18893069 (Version 2)
Quarter: 2021Q1

REPORT INFORMATION
  Report Type: Spontaneous
  Country: DE (occurrence: DE)
  Receive Date: 20210215
  Receipt Date: 20210225
  Transmission Date: 20210420
  Serious: Yes (Hospitalization)
  Sender: FDA-Public Use
  Company Number: DE-TAKEDA-2021TUS007896

PATIENT
  Age: 21 Year
  Sex: Female

DRUGS (1)
  1. ENTYVIO [Suspect]
     Active Substance: VEDOLIZUMAB
     Indication: CROHN^S DISEASE
     Dosage: UNK
     Route: 065
     Dates: start: 202001

REACTIONS (2)
  - COVID-19 [Recovered/Resolved with Sequelae]
  - Poor peripheral circulation [Unknown]

NARRATIVE: CASE EVENT DATE: 20210110
